FAERS Safety Report 5754162-4 (Version None)
Quarter: 2008Q2

REPORT INFORMATION
  Report Type: 
  Country: None (occurrence: None)
  Receive Date: 20080530
  Receipt Date: 20080528
  Transmission Date: 20081010
  Serious: Yes (Life-Threatening)
  Sender: FDA-Public Use
  Company Number: IL-ASTRAZENECA-2008AC01352

PATIENT
  Age: 52 Year
  Sex: Male

DRUGS (3)
  1. PROPOFOL [Suspect]
     Indication: SEDATION
  2. PROPOFOL [Suspect]
  3. ATRACRIUM [Concomitant]
     Indication: SEDATION

REACTIONS (6)
  - HYPERBILIRUBINAEMIA [None]
  - HYPERTRIGLYCERIDAEMIA [None]
  - METABOLIC ACIDOSIS [None]
  - PROPOFOL INFUSION SYNDROME [None]
  - RENAL FAILURE ACUTE [None]
  - RHABDOMYOLYSIS [None]
